FAERS Safety Report 25539793 (Version 1)
Quarter: 2025Q3

REPORT INFORMATION
  Report Type: Spontaneous
  Country: US (occurrence: None)
  Receive Date: 20250710
  Receipt Date: 20250710
  Transmission Date: 20251020
  Serious: Yes (Disabling)
  Sender: FDA-CTU
  Company Number: None

PATIENT
  Age: 61 Year
  Sex: Female
  Weight: 85.5 kg

DRUGS (11)
  1. NITROFURANTOIN MONOHYDRATE MACROCRYSTALS [Suspect]
     Active Substance: NITROFURANTOIN\NITROFURANTOIN MONOHYDRATE
     Indication: Cystitis
     Dosage: OTHER QUANTITY : 14 CAPSULE(S);?FREQUENCY : TWICE A DAY;?
     Route: 048
     Dates: start: 20250627, end: 20250704
  2. ATORVASTATIN [Concomitant]
     Active Substance: ATORVASTATIN
  3. Levothyroxine 75 MCG tablet [Concomitant]
  4. Oxybutynin Cler 10 MG tablet [Concomitant]
  5. Singular Metoprolol Tartrate 25 MG Tablet [Concomitant]
  6. CALCIUM [Concomitant]
     Active Substance: CALCIUM
  7. IRON [Concomitant]
     Active Substance: IRON
  8. Vitamin D ** [Concomitant]
  9. ZYRTEC [Concomitant]
     Active Substance: CETIRIZINE HYDROCHLORIDE
  10. ALLEGRA [Concomitant]
     Active Substance: FEXOFENADINE HYDROCHLORIDE
  11. XYZAL [Concomitant]
     Active Substance: LEVOCETIRIZINE DIHYDROCHLORIDE

REACTIONS (6)
  - Gastrooesophageal reflux disease [None]
  - Cough [None]
  - Lymphadenopathy [None]
  - Lymph node pain [None]
  - Dysphonia [None]
  - Headache [None]

NARRATIVE: CASE EVENT DATE: 20250702
